FAERS Safety Report 23635786 (Version 2)
Quarter: 2024Q3

REPORT INFORMATION
  Report Type: Spontaneous
  Country: CA (occurrence: CA)
  Receive Date: 20240315
  Receipt Date: 20240918
  Transmission Date: 20241017
  Serious: Yes (Death, Hospitalization, Other)
  Sender: IPSEN
  Company Number: CA-IPSEN Group, Research and Development-2024-04214

PATIENT
  Age: 63 Year
  Sex: Male
  Weight: 67 kg

DRUGS (7)
  1. LANREOTIDE ACETATE [Suspect]
     Active Substance: LANREOTIDE ACETATE
     Indication: Pancreatic neuroendocrine tumour metastatic
     Route: 058
     Dates: start: 20190125, end: 2023
  2. FAMOTIDINE [Concomitant]
     Active Substance: FAMOTIDINE
     Route: 048
  3. PERINDOPRIL [Concomitant]
     Active Substance: PERINDOPRIL
     Route: 048
  4. POTASSIUM CHLORIDE [Concomitant]
     Active Substance: POTASSIUM CHLORIDE
     Dosage: 12 MLS
     Route: 048
  5. POTASSIUM CHLORIDE [Concomitant]
     Active Substance: POTASSIUM CHLORIDE
     Route: 048
  6. SUCRALFATE [Concomitant]
     Active Substance: SUCRALFATE
     Indication: Oral pain
     Dosage: QID PRN
  7. SUTENT [Concomitant]
     Active Substance: SUNITINIB MALATE
     Route: 048

REACTIONS (3)
  - Acquired haemophilia [Fatal]
  - Haemoglobinaemia [Fatal]
  - Transfusion [Fatal]

NARRATIVE: CASE EVENT DATE: 20230101
